FAERS Safety Report 6569993-0 (Version None)
Quarter: 2010Q1

REPORT INFORMATION
  Report Type: 
  Country: None (occurrence: None)
  Receive Date: 20100204
  Receipt Date: 20090807
  Transmission Date: 20100710
  Serious: Yes (Other)
  Sender: FDA-Public Use
  Company Number: US-SANOFI-AVENTIS-A01200908174

PATIENT

DRUGS (4)
  1. FUROSEMIDE [Suspect]
     Indication: FLUID RETENTION
     Dosage: UNIT DOSE: 20 MG
     Route: 064
  2. LIDOCAINE AND EPINEPHRINE [Suspect]
     Dosage: DOSE TEXT: 3ML OF LIDOCAINE/EPINEPHRINE (20MG/ML/5MICROG/ML) + 3ML IN ASSOCIATION WITH FENTANYL
     Route: 064
  3. FENTANYL [Suspect]
     Route: 064
  4. DIGOXIN [Concomitant]
     Indication: FLUID RETENTION
     Dosage: UNIT DOSE: .125 MG
     Route: 064

REACTIONS (2)
  - DRUG EXPOSURE DURING PREGNANCY [None]
  - HEART RATE DECREASED [None]
